FAERS Safety Report 5376335-5 (Version None)
Quarter: 2007Q3

REPORT INFORMATION
  Report Type: 
  Country: None (occurrence: None)
  Receive Date: 20070702
  Receipt Date: 20070622
  Transmission Date: 20080115
  Serious: Yes (Hospitalization)
  Sender: FDA-Public Use
  Company Number: DE-AMGEN-US207019

PATIENT
  Age: 34 Year
  Sex: Male

DRUGS (7)
  1. ENBREL [Suspect]
     Indication: RHEUMATOID ARTHRITIS
     Dosage: 50MG
     Route: 058
     Dates: start: 20060101
  2. DECORTIN [Concomitant]
     Route: 048
  3. NALOXONE [Concomitant]
  4. IBUPROFEN [Concomitant]
     Dosage: 800 MG 3 -4 TIMES DAILY
     Route: 048
  5. OXYCODONE HCL [Concomitant]
  6. MORPHINE [Concomitant]
  7. AMITRIPTYLINE HCL [Concomitant]
     Route: 048

REACTIONS (3)
  - CONDITION AGGRAVATED [None]
  - DRUG INEFFECTIVE [None]
  - RHEUMATOID ARTHRITIS [None]
